FAERS Safety Report 5763791-3 (Version None)
Quarter: 2008Q2

REPORT INFORMATION
  Report Type: 
  Country: None (occurrence: None)
  Receive Date: 20080604
  Receipt Date: 20080604
  Transmission Date: 20081010
  Serious: Yes (Death, Hospitalization)
  Sender: FDA-Public Use
  Company Number: None

PATIENT
  Sex: Female
  Weight: 17.8 kg

DRUGS (5)
  1. DOXORUBICIN HYDROCHLORIDE [Suspect]
     Dosage: 162 MG
  2. CYCLOPHOSPHAMIDE [Suspect]
     Dosage: 5971 MG
  3. CARBOPLATIN [Suspect]
     Dosage: 1720 MG
  4. ETOPOSIDE [Suspect]
  5. VINCRISTINE SULFATE [Suspect]
     Dosage: 14.4 MG

REACTIONS (3)
  - CARDIO-RESPIRATORY ARREST [None]
  - CARDIOMYOPATHY [None]
  - UNRESPONSIVE TO STIMULI [None]
